FAERS Safety Report 7177246-5 (Version None)
Quarter: 2010Q4

REPORT INFORMATION
  Report Type: 
  Country: None (occurrence: None)
  Receive Date: 20101215
  Receipt Date: 20101215
  Transmission Date: 20110411
  Serious: No
  Sender: FDA-Public Use
  Company Number: None

PATIENT
  Sex: Female
  Weight: 70.5 kg

DRUGS (1)
  1. PEG-L-ASPARAGINASE (K-H) [Suspect]
     Dosage: 8775 IU

REACTIONS (1)
  - BLOOD TRIGLYCERIDES INCREASED [None]
